FAERS Safety Report 23526505 (Version 1)
Quarter: 2024Q1

REPORT INFORMATION
  Report Type: Spontaneous
  Country: PL (occurrence: PL)
  Receive Date: 20240215
  Receipt Date: 20240215
  Transmission Date: 20240410
  Serious: Yes (Other)
  Sender: FDA-Public Use
  Company Number: None

PATIENT
  Age: 83 Year
  Sex: Female

DRUGS (2)
  1. PREGABALIN [Suspect]
     Active Substance: PREGABALIN
     Indication: Polyneuropathy
     Dosage: 150MG-200MG, DOSAGE 2 TIMES  PER DAY, START DATE 2,5YEARS AGO
     Route: 048
  2. ACETAMINOPHEN\TRAMADOL HYDROCHLORIDE [Concomitant]
     Active Substance: ACETAMINOPHEN\TRAMADOL HYDROCHLORIDE
     Route: 048

REACTIONS (4)
  - Breast enlargement [Not Recovered/Not Resolved]
  - Skin exfoliation [Unknown]
  - Lacrimation increased [Unknown]
  - Skin atrophy [Unknown]
